FAERS Safety Report 14303643 (Version 1)
Quarter: 2017Q4

REPORT INFORMATION
  Report Type: Spontaneous
  Country: GB (occurrence: GB)
  Receive Date: 20171219
  Receipt Date: 20171219
  Transmission Date: 20180321
  Serious: Yes (Other)
  Sender: FDA-Public Use
  Company Number: GB-OTSUKA-2016_002054

PATIENT
  Age: 33 Year
  Sex: Female

DRUGS (1)
  1. ABILIFY [Suspect]
     Active Substance: ARIPIPRAZOLE
     Indication: SCHIZOPHRENIA
     Dosage: 25 MG, QD
     Route: 048

REACTIONS (3)
  - Maternal exposure during pregnancy [Unknown]
  - Schizophrenia [Unknown]
  - Off label use [Unknown]
